FAERS Safety Report 19318325 (Version 1)
Quarter: 2021Q2

REPORT INFORMATION
  Report Type: Spontaneous
  Country: US (occurrence: US)
  Receive Date: 20210527
  Receipt Date: 20210527
  Transmission Date: 20210717
  Serious: No
  Sender: FDA-Public Use
  Company Number: US-MERZ PHARMACEUTICALS GMBH-21-01889

PATIENT

DRUGS (1)
  1. XEOMIN [Suspect]
     Active Substance: INCOBOTULINUMTOXINA
     Indication: PRODUCT USED FOR UNKNOWN INDICATION
     Dates: start: 20210514, end: 20210514

REACTIONS (3)
  - Erythema [Recovering/Resolving]
  - Swelling of eyelid [Recovering/Resolving]
  - Product preparation issue [Unknown]

NARRATIVE: CASE EVENT DATE: 20210514
